FAERS Safety Report 17499459 (Version 1)
Quarter: 2020Q1

REPORT INFORMATION
  Report Type: Spontaneous
  Country: GB (occurrence: GB)
  Receive Date: 20200305
  Receipt Date: 20200305
  Transmission Date: 20200409
  Serious: Yes (Disabling)
  Sender: FDA-Public Use
  Company Number: GB-TEVA-2020-GB-1194701

PATIENT
  Age: 82 Year
  Sex: Male
  Weight: 78 kg

DRUGS (8)
  1. TADALAFIL. [Suspect]
     Active Substance: TADALAFIL
     Indication: PULMONARY HYPERTENSION
     Route: 048
     Dates: start: 20190725, end: 20190819
  2. ACETYLSALICYLIC ACID [Concomitant]
     Active Substance: ASPIRIN
  3. OXYGEN. [Concomitant]
     Active Substance: OXYGEN
  4. TADALAFIL. [Suspect]
     Active Substance: TADALAFIL
     Dosage: 120 MG
     Route: 048
     Dates: start: 20190820, end: 20200107
  5. AMBRISENTAN [Concomitant]
     Active Substance: AMBRISENTAN
  6. FUROSEMIDE. [Concomitant]
     Active Substance: FUROSEMIDE
  7. BISOPROLOL [Concomitant]
     Active Substance: BISOPROLOL
  8. SALBUTAMOL [Concomitant]
     Active Substance: ALBUTEROL

REACTIONS (2)
  - Condition aggravated [Not Recovered/Not Resolved]
  - Deafness [Not Recovered/Not Resolved]

NARRATIVE: CASE EVENT DATE: 20191220
